FAERS Safety Report 4826073-X (Version None)
Quarter: 2005Q4

REPORT INFORMATION
  Report Type: 
  Country: None (occurrence: None)
  Receive Date: 20051111
  Receipt Date: 20051026
  Transmission Date: 20060501
  Serious: Yes (Hospitalization)
  Sender: FDA-Public Use
  Company Number: 2005AP05574

PATIENT
  Age: 27 Year
  Sex: Male
  Weight: 49 kg

DRUGS (14)
  1. DIPRIVAN [Suspect]
     Indication: SEDATION
     Route: 042
     Dates: start: 20051016, end: 20051021
  2. NEOPHYLLIN [Suspect]
     Indication: ASTHMA
     Route: 042
     Dates: start: 20051016, end: 20051023
  3. UNASYN [Suspect]
     Indication: PNEUMONIA
     Route: 042
     Dates: start: 20051016, end: 20051023
  4. SEVOFRANE [Suspect]
     Indication: ASTHMA
     Route: 055
     Dates: start: 20051019, end: 20051021
  5. DORMICUM [Concomitant]
     Indication: SEDATION
     Route: 042
     Dates: start: 20051016, end: 20051021
  6. PROTERNOL [Concomitant]
     Route: 055
     Dates: start: 20051016, end: 20051025
  7. SOLU-MEDROL [Concomitant]
     Indication: ASTHMA
     Route: 042
     Dates: start: 20051016, end: 20051017
  8. BOSMIN [Concomitant]
     Indication: ASTHMA
     Route: 042
     Dates: start: 20051016, end: 20051018
  9. MAGNESOL [Concomitant]
     Indication: ASTHMA
     Route: 042
     Dates: start: 20051016, end: 20051019
  10. MUSCULAX [Concomitant]
     Indication: SEDATION
     Route: 042
     Dates: start: 20051016, end: 20051021
  11. RINDERON [Concomitant]
     Indication: ASTHMA
     Route: 042
     Dates: start: 20051017, end: 20051019
  12. PROTERNOL-L [Concomitant]
     Indication: ASTHMA
     Route: 042
     Dates: start: 20051018, end: 20051018
  13. IMMUNE GLOBULIN INTRAVENOUS (HUMAN) [Concomitant]
     Indication: PNEUMONIA
     Route: 042
     Dates: start: 20051020, end: 20051024
  14. BRICANYL INJECTION [Concomitant]
     Indication: ASTHMA
     Route: 058
     Dates: start: 20051020, end: 20051030

REACTIONS (8)
  - ALANINE AMINOTRANSFERASE INCREASED [None]
  - ASPARTATE AMINOTRANSFERASE INCREASED [None]
  - BLOOD LACTATE DEHYDROGENASE INCREASED [None]
  - BLOOD PRESSURE INCREASED [None]
  - BRAIN OEDEMA [None]
  - LIVER DISORDER [None]
  - MYDRIASIS [None]
  - SUBARACHNOID HAEMORRHAGE [None]
